FAERS Safety Report 7013846-0 (Version None)
Quarter: 2010Q3

REPORT INFORMATION
  Report Type: 
  Country: None (occurrence: None)
  Receive Date: 20100924
  Receipt Date: 20100915
  Transmission Date: 20110219
  Serious: Yes (Other)
  Sender: FDA-Public Use
  Company Number: US-ABBOTT-10P-163-0664583-00

PATIENT
  Sex: Female

DRUGS (2)
  1. LUPRON DEPOT [Suspect]
     Indication: PRODUCT USED FOR UNKNOWN INDICATION
  2. ESTROGEN [Concomitant]
     Indication: PRODUCT USED FOR UNKNOWN INDICATION
     Dosage: PATCHES
     Dates: start: 20100830

REACTIONS (6)
  - ABORTION SPONTANEOUS [None]
  - EMOTIONAL DISORDER [None]
  - HEADACHE [None]
  - INJECTION SITE PAPULE [None]
  - INSOMNIA [None]
  - WEIGHT INCREASED [None]
